FAERS Safety Report 20298516 (Version 11)
Quarter: 2022Q2

REPORT INFORMATION
  Report Type: Report from Study
  Country: ES (occurrence: None)
  Receive Date: 20220105
  Receipt Date: 20220405
  Transmission Date: 20220720
  Serious: Yes (Life-Threatening, Hospitalization)
  Sender: FDA-Public Use
  Company Number: ES-Eisai Medical Research-EC-2021-106154

PATIENT
  Age: 76 Year
  Sex: Female
  Weight: 72 kg

DRUGS (25)
  1. LENVATINIB [Suspect]
     Active Substance: LENVATINIB
     Indication: Colorectal cancer metastatic
     Route: 048
     Dates: start: 20211202, end: 20211209
  2. LENVATINIB [Suspect]
     Active Substance: LENVATINIB
     Route: 048
     Dates: start: 20211215, end: 20211227
  3. PEMBROLIZUMAB [Suspect]
     Active Substance: PEMBROLIZUMAB
     Indication: Colorectal cancer metastatic
     Route: 041
     Dates: start: 20211202, end: 20211202
  4. NOLOTIL [Concomitant]
     Dates: start: 20211209, end: 20211210
  5. ACETAMINOPHEN [Concomitant]
     Active Substance: ACETAMINOPHEN
     Dates: start: 20211209, end: 20211209
  6. NITROGLYCERIN [Concomitant]
     Active Substance: NITROGLYCERIN
     Dates: start: 20211209, end: 20211209
  7. NITROGLYCERIN [Concomitant]
     Active Substance: NITROGLYCERIN
     Dates: start: 20211209, end: 20211211
  8. DEXTROSE [Concomitant]
     Active Substance: DEXTROSE
     Dates: start: 20211209, end: 20211210
  9. DEXAMETHASONE [Concomitant]
     Active Substance: DEXAMETHASONE
     Dates: start: 20211209, end: 20211210
  10. HYDRALAZINE HYDROCHLORIDE [Concomitant]
     Active Substance: HYDRALAZINE HYDROCHLORIDE
     Dates: start: 20211209, end: 20211210
  11. HYDRALAZINE HYDROCHLORIDE [Concomitant]
     Active Substance: HYDRALAZINE HYDROCHLORIDE
     Dates: start: 20211210, end: 20211210
  12. CAPTOPRIL [Concomitant]
     Active Substance: CAPTOPRIL
     Dates: start: 20211209, end: 20211209
  13. COZAAR [Concomitant]
     Active Substance: LOSARTAN POTASSIUM
     Dates: start: 20211210, end: 20211210
  14. DIOVAN [Concomitant]
     Active Substance: VALSARTAN
     Dates: start: 20211210, end: 20211210
  15. SOLINITRINA [Concomitant]
     Dates: start: 20211210, end: 20211210
  16. ESIDREX [Concomitant]
     Active Substance: HYDROCHLOROTHIAZIDE
     Dates: start: 20211210, end: 20211210
  17. BISOPROLOL [Concomitant]
     Active Substance: BISOPROLOL
     Dates: start: 20211210, end: 20211210
  18. NITROGLYCERIN [Concomitant]
     Active Substance: NITROGLYCERIN
     Dates: start: 20211210, end: 20211210
  19. METOCLOPRAMIDE [Concomitant]
     Active Substance: METOCLOPRAMIDE
     Dates: start: 20211210, end: 20211210
  20. METOCLOPRAMIDE [Concomitant]
     Active Substance: METOCLOPRAMIDE
     Dates: start: 20211210, end: 20211211
  21. AMLODIPINE [Concomitant]
     Active Substance: AMLODIPINE BESYLATE
     Dates: start: 20211210, end: 20211210
  22. SPIRONOLACTONE [Concomitant]
     Active Substance: SPIRONOLACTONE
     Dates: start: 202109, end: 20211230
  23. BISOPROLOL [Concomitant]
     Active Substance: BISOPROLOL
     Dates: start: 202109
  24. HYDROCHLOROTHIAZIDE\VALSARTAN [Concomitant]
     Active Substance: HYDROCHLOROTHIAZIDE\VALSARTAN
     Dates: start: 202109
  25. HYDROPRES [Concomitant]
     Dates: start: 202109

REACTIONS (1)
  - Hypertension [Recovered/Resolved]

NARRATIVE: CASE EVENT DATE: 20211221
